FAERS Safety Report 8067888-7 (Version None)
Quarter: 2012Q1

REPORT INFORMATION
  Report Type: 
  Country: None (occurrence: None)
  Receive Date: 20120124
  Receipt Date: 20110830
  Transmission Date: 20120608
  Serious: No
  Sender: FDA-Public Use
  Company Number: US-AMGEN-USASP2011044394

PATIENT
  Age: 77 Year
  Sex: Female

DRUGS (7)
  1. MAGNESIUM SULFATE [Concomitant]
     Indication: CONSTIPATION
  2. PROLIA [Suspect]
     Indication: OSTEOPOROSIS POSTMENOPAUSAL
     Dosage: 60 MG, Q6MO
     Dates: start: 20110804
  3. VITAMIN D                          /00318501/ [Concomitant]
  4. CENTRUM SILVER                     /01292501/ [Concomitant]
  5. SYNTHROID [Concomitant]
  6. CALCIUM [Concomitant]
  7. B12                                /00056201/ [Concomitant]

REACTIONS (1)
  - CONSTIPATION [None]
